FAERS Safety Report 9220395 (Version 1)
Quarter: 2013Q1

REPORT INFORMATION
  Report Type: Spontaneous
  Country: US (occurrence: None)
  Receive Date: 20120830
  Receipt Date: 20120830
  Transmission Date: 20140127
  Serious: Yes (Hospitalization)
  Sender: FDA-Public Use
  Company Number: PHEH2011US009633

PATIENT
  Sex: Female

DRUGS (1)
  1. SANDOSTATIN [Suspect]
     Route: 042

REACTIONS (6)
  - Flushing [None]
  - Chest pain [None]
  - Blood pressure systolic increased [None]
  - Dyspnoea [None]
  - Tachycardia [None]
  - Incorrect route of drug administration [None]
